FAERS Safety Report 6684227-4 (Version None)
Quarter: 2010Q2

REPORT INFORMATION
  Report Type: 
  Country: None (occurrence: None)
  Receive Date: 20100416
  Receipt Date: 20100405
  Transmission Date: 20101027
  Serious: No
  Sender: FDA-Public Use
  Company Number: US-JNJFOC-20100401949

PATIENT
  Sex: Female

DRUGS (1)
  1. DURAGESIC-100 [Suspect]
     Indication: PAIN
     Dosage: 125UG/HR TO 150 UG/HR/PATCH/100UG/HR PLUS 25UG/HR OR 100UG/HR PLUS 50UG/HR/1 EVERY 24 HOUR AS NEEDED
     Route: 062

REACTIONS (2)
  - DRUG PRESCRIBING ERROR [None]
  - INAPPROPRIATE SCHEDULE OF DRUG ADMINISTRATION [None]
